FAERS Safety Report 9758548 (Version 1)
Quarter: 2013Q4

REPORT INFORMATION
  Report Type: Spontaneous
  Country: US (occurrence: None)
  Receive Date: 20131216
  Receipt Date: 20131216
  Transmission Date: 20140711
  Serious: No
  Sender: FDA-Public Use
  Company Number: CABO-13002450

PATIENT
  Age: 44 Year
  Sex: Male
  Weight: 89 kg

DRUGS (1)
  1. COMETRIQ (CABOZANTINIB) CAPSULE [Suspect]
     Indication: THYROID CANCER
     Dosage: 140 MG, QD, ORAL?140 MG, QD, ORAL

REACTIONS (13)
  - Paranasal sinus hypersecretion [None]
  - Cyanosis [None]
  - Pain [None]
  - Flatulence [None]
  - Hepatic function abnormal [None]
  - Dysphagia [None]
  - Gingival pain [None]
  - Dyspepsia [None]
  - Constipation [None]
  - Sinus headache [None]
  - Muscle spasms [None]
  - Fatigue [None]
  - Nausea [None]
